FAERS Safety Report 16680561 (Version 2)
Quarter: 2019Q3

REPORT INFORMATION
  Report Type: Report from Study
  Country: None (occurrence: GB)
  Receive Date: 20190807
  Receipt Date: 20190905
  Transmission Date: 20191004
  Serious: Yes (Hospitalization)
  Sender: FDA-Public Use
  Company Number: GB-ABBVIE-19K-167-2879969-00

PATIENT
  Sex: Male

DRUGS (1)
  1. DUODOPA [Suspect]
     Active Substance: CARBIDOPA\LEVODOPA
     Indication: PARKINSON^S DISEASE
     Dosage: 100ML CASSETTE DAILY ??5MG/1ML??20MG/1ML
     Route: 050

REACTIONS (1)
  - Infection [Unknown]
